FAERS Safety Report 8914846 (Version 2)
Quarter: 2013Q1

REPORT INFORMATION
  Report Type: Spontaneous
  Country: US (occurrence: US)
  Receive Date: 20121119
  Receipt Date: 20130125
  Transmission Date: 20140127
  Serious: Yes (Death)
  Sender: FDA-Public Use
  Company Number: US-ELI_LILLY_AND_COMPANY-US201211005006

PATIENT
  Age: 53 Year
  Sex: Female
  Weight: 47.71 kg

DRUGS (1)
  1. FORTEO [Suspect]
     Indication: SENILE OSTEOPOROSIS
     Dosage: 20 UG, QD

REACTIONS (1)
  - Death [Fatal]
